FAERS Safety Report 4778649-6 (Version None)
Quarter: 2005Q3

REPORT INFORMATION
  Report Type: 
  Country: None (occurrence: None)
  Receive Date: 20050926
  Receipt Date: 20050912
  Transmission Date: 20060218
  Serious: Yes (Hospitalization)
  Sender: FDA-Public Use
  Company Number: FR-GLAXOSMITHKLINE-B0393532A

PATIENT
  Age: 81 Year
  Sex: Female

DRUGS (4)
  1. DEROXAT [Suspect]
     Dosage: 10MG PER DAY
     Route: 048
  2. FURADANTIN [Suspect]
     Indication: CYSTITIS
     Dosage: 2UNIT PER DAY
     Route: 048
     Dates: start: 20010101, end: 20050726
  3. LORAZEPAM [Suspect]
     Dosage: 1MG PER DAY
     Route: 048
  4. SINGULAIR [Suspect]
     Dosage: 10MG PER DAY
     Route: 048
     Dates: end: 20050726

REACTIONS (3)
  - BRONCHOALVEOLAR LAVAGE ABNORMAL [None]
  - HYPOXIA [None]
  - LUNG DISORDER [None]
